FAERS Safety Report 20802309 (Version 1)
Quarter: 2022Q2

REPORT INFORMATION
  Report Type: Spontaneous
  Country: US (occurrence: None)
  Receive Date: 20220509
  Receipt Date: 20220509
  Transmission Date: 20220720
  Serious: Yes (Life-Threatening, Other)
  Sender: FDA-Public Use
  Company Number: US-MICRO LABS LIMITED-ML2022-01962

PATIENT
  Age: 7 Day
  Sex: Female

DRUGS (4)
  1. DIPHENHYDRAMINE HYDROCHLORIDE [Suspect]
     Active Substance: DIPHENHYDRAMINE HYDROCHLORIDE
     Indication: Infusion related reaction
  2. FAMOTIDINE [Suspect]
     Active Substance: FAMOTIDINE
     Indication: Infusion related reaction
  3. ALBUTEROL [Suspect]
     Active Substance: ALBUTEROL
     Indication: Infusion related reaction
  4. SOLU-MEDROL [Suspect]
     Active Substance: METHYLPREDNISOLONE SODIUM SUCCINATE
     Indication: Infusion related reaction

REACTIONS (1)
  - Drug ineffective [Unknown]
